FAERS Safety Report 4350072-8 (Version None)
Quarter: 2004Q2

REPORT INFORMATION
  Report Type: 
  Country: None (occurrence: None)
  Receive Date: 20040429
  Receipt Date: 20040426
  Transmission Date: 20050107
  Serious: Yes (Life-Threatening, Hospitalization)
  Sender: FDA-Public Use
  Company Number: CA-MERCK-0404CAN00133

PATIENT
  Age: 61 Year
  Sex: Male
  Weight: 81 kg

DRUGS (3)
  1. ATORVASTATIN CALCIUM [Concomitant]
     Indication: DYSLIPIDAEMIA
     Route: 065
  2. HYDROCHLOROTHIAZIDE [Concomitant]
     Route: 065
     Dates: start: 20040129, end: 20040406
  3. COZAAR [Suspect]
     Indication: HYPERTENSION
     Route: 048
     Dates: start: 20040406, end: 20040417

REACTIONS (2)
  - ANGINA UNSTABLE [None]
  - ELECTROCARDIOGRAM ST SEGMENT DEPRESSION [None]
